FAERS Safety Report 9955049 (Version 4)
Quarter: 2014Q1

REPORT INFORMATION
  Report Type: Spontaneous
  Country: US (occurrence: US)
  Receive Date: 20140304
  Receipt Date: 20140324
  Transmission Date: 20141002
  Serious: Yes (Hospitalization)
  Sender: FDA-Public Use
  Company Number: US-TMC-CABO-13003784

PATIENT
  Age: 71 Year
  Sex: Female
  Weight: 131.5 kg

DRUGS (35)
  1. COMETRIQ [Suspect]
     Indication: LUNG NEOPLASM MALIGNANT
     Dosage: 60 MG, QD
     Route: 048
     Dates: start: 20131118, end: 20131119
  2. COMETRIQ [Suspect]
     Dosage: 60 MG, QD
     Route: 048
     Dates: start: 20131213, end: 20140205
  3. XARELTO [Concomitant]
  4. EVISTA [Concomitant]
  5. FLECAINIDE [Concomitant]
  6. BYSTOLIC [Concomitant]
  7. FUROSEMIDE [Concomitant]
  8. DESOXIMETASONE [Concomitant]
  9. IBUPROFEN [Concomitant]
  10. KADIAN [Concomitant]
  11. MORPHINE SULFATE [Concomitant]
  12. MAGNESIUM OXIDE [Concomitant]
  13. LYRICA [Concomitant]
  14. MURO-128 [Concomitant]
  15. ESTRACE [Concomitant]
  16. PROAIR [Concomitant]
  17. ASTEPRO [Concomitant]
  18. LOSARTAN HYDROCHLOROTHIAZIDE TEVA [Concomitant]
  19. SPIRIVA [Concomitant]
  20. KETOCONAZOLE [Concomitant]
  21. OMEPRAZOLE [Concomitant]
  22. FLUTICASONE PROPIONATE [Concomitant]
  23. DULERA [Concomitant]
  24. CETIRIZINE [Concomitant]
  25. SINGULAIR [Concomitant]
  26. MUCINEX [Concomitant]
  27. SENNA GLEN [Concomitant]
  28. SYSTANE [Concomitant]
  29. THERA TEARS [Concomitant]
  30. TYLENOL ARTHRITIS [Concomitant]
  31. ZYRTEC [Concomitant]
  32. ALBUTEROL SULFATE [Concomitant]
  33. POTASSIUM CHLORIDE [Concomitant]
  34. SENIOR VITAMIN [Concomitant]
  35. METRONIDAZOLE [Concomitant]

REACTIONS (24)
  - Labile blood pressure [Unknown]
  - Hypotension [Unknown]
  - Pneumonia [Unknown]
  - Sepsis [Unknown]
  - Excoriation [Unknown]
  - Nail disorder [Unknown]
  - Nail bed bleeding [Unknown]
  - Pharyngeal ulceration [Unknown]
  - Increased tendency to bruise [Unknown]
  - Insomnia [Unknown]
  - Muscle spasms [Unknown]
  - Dizziness [Unknown]
  - Haemoptysis [Unknown]
  - Glossodynia [Unknown]
  - Nausea [Unknown]
  - Weight decreased [Unknown]
  - Stomatitis [Unknown]
  - Epistaxis [Recovered/Resolved with Sequelae]
  - Mouth ulceration [Unknown]
  - Musculoskeletal chest pain [Unknown]
  - Dyspnoea [Unknown]
  - Fatigue [Unknown]
  - Off label use [Unknown]
  - Drug ineffective for unapproved indication [Unknown]
